FAERS Safety Report 4397080-9 (Version None)
Quarter: 2004Q3

REPORT INFORMATION
  Report Type: 
  Country: None (occurrence: None)
  Receive Date: 20040714
  Receipt Date: 20040614
  Transmission Date: 20050211
  Serious: Yes (Other)
  Sender: FDA-Public Use
  Company Number: PHNU2004DE02144

PATIENT
  Age: 45 Year
  Sex: Male

DRUGS (2)
  1. SANDIMMUNE [Suspect]
     Indication: GLOMERULONEPHRITIS PROLIFERATIVE
     Dosage: 150 MG, BID
     Route: 048
     Dates: start: 20040513
  2. SANDIMMUNE [Suspect]
     Dosage: 100 MG, BID
     Route: 048
     Dates: start: 20040601, end: 20040608

REACTIONS (8)
  - BLOOD CREATININE INCREASED [None]
  - BLOOD UREA INCREASED [None]
  - GLOMERULAR FILTRATION RATE DECREASED [None]
  - LEUKOCYTURIA [None]
  - NEPHRITIS INTERSTITIAL [None]
  - PROTEINURIA [None]
  - RENAL FAILURE ACUTE [None]
  - URINARY TRACT INFECTION [None]
